FAERS Safety Report 24701679 (Version 2)
Quarter: 2025Q3

REPORT INFORMATION
  Report Type: Report from Study
  Country: US (occurrence: US)
  Receive Date: 20241205
  Receipt Date: 20250809
  Transmission Date: 20251021
  Serious: Yes (Other)
  Sender: ALEXION PHARMACEUTICALS
  Company Number: US-AstraZeneca-CH-00759572A

PATIENT
  Sex: Female
  Weight: 58.51 kg

DRUGS (1)
  1. CAPIVASERTIB [Suspect]
     Active Substance: CAPIVASERTIB
     Indication: Breast cancer female
     Dosage: 200 MILLIGRAM, BID
     Dates: start: 20241107

REACTIONS (4)
  - Neuropathy peripheral [Unknown]
  - Scan abnormal [Unknown]
  - Abdominal pain upper [Unknown]
  - Injection site pain [Unknown]
